FAERS Safety Report 5671098-8 (Version None)
Quarter: 2008Q1

REPORT INFORMATION
  Report Type: 
  Country: None (occurrence: None)
  Receive Date: 20080317
  Receipt Date: 20080317
  Transmission Date: 20080703
  Serious: Yes (Life-Threatening, Hospitalization)
  Sender: FDA-Public Use
  Company Number: None

PATIENT
  Age: 55 Year
  Sex: Female
  Weight: 53.0709 kg

DRUGS (1)
  1. METOCLOPRAMIDE [Suspect]
     Indication: IMPAIRED GASTRIC EMPTYING
     Dosage: 1 3X BEFORE MEALS ORAL
     Route: 048
     Dates: start: 20080122, end: 20080129

REACTIONS (3)
  - HEART RATE INCREASED [None]
  - HYPERTENSION [None]
  - TEMPORAL LOBE EPILEPSY [None]
